FAERS Safety Report 23579240 (Version 3)
Quarter: 2025Q1

REPORT INFORMATION
  Report Type: Spontaneous
  Country: JP (occurrence: JP)
  Receive Date: 20240229
  Receipt Date: 20250318
  Transmission Date: 20250408
  Serious: Yes (Hospitalization, Other)
  Sender: BRISTOL-MYERS SQUIBB COMPANY
  Company Number: JP-ONO-2024JP003936

PATIENT
  Age: 72 Year
  Sex: Female

DRUGS (5)
  1. OPDIVO [Suspect]
     Active Substance: NIVOLUMAB
     Indication: Squamous cell carcinoma of lung
     Route: 041
  2. PACLITAXEL [Suspect]
     Active Substance: PACLITAXEL
     Indication: Squamous cell carcinoma of lung
  3. CARBOPLATIN [Concomitant]
     Active Substance: CARBOPLATIN
     Indication: Squamous cell carcinoma of lung
  4. WARFARIN [Concomitant]
     Active Substance: WARFARIN
     Route: 048
  5. TICLOPIDINE HYDROCHLORIDE [Concomitant]
     Active Substance: TICLOPIDINE HYDROCHLORIDE
     Route: 048

REACTIONS (8)
  - Pneumonia [Recovering/Resolving]
  - Nervous system disorder [Unknown]
  - Postoperative wound complication [Unknown]
  - Feeling hot [Unknown]
  - Hypopituitarism [Unknown]
  - Atelectasis [Recovered/Resolved]
  - Blood pressure systolic decreased [Recovered/Resolved]
  - Hyponatraemia [Unknown]
